FAERS Safety Report 15741250 (Version 2)
Quarter: 2019Q2

REPORT INFORMATION
  Report Type: Report from Study
  Country: US (occurrence: US)
  Receive Date: 20181219
  Receipt Date: 20190419
  Transmission Date: 20190711
  Serious: Yes (Other)
  Sender: FDA-Public Use
  Company Number: US-GLAXOSMITHKLINE-US2018GSK228447

PATIENT
  Sex: Female

DRUGS (1)
  1. BELIMUMAB [Suspect]
     Active Substance: BELIMUMAB
     Indication: SYSTEMIC LUPUS ERYTHEMATOSUS
     Dosage: ONCE PER MONTH FOR ONE YEAR
     Route: 042
     Dates: start: 2014, end: 20180314

REACTIONS (4)
  - Dry mouth [Unknown]
  - Systemic lupus erythematosus [Recovering/Resolving]
  - Therapeutic product effect incomplete [Recovered/Resolved]
  - Arthralgia [Unknown]
